FAERS Safety Report 15545178 (Version 1)
Quarter: 2018Q4

REPORT INFORMATION
  Report Type: Spontaneous
  Country: US (occurrence: US)
  Receive Date: 20181024
  Receipt Date: 20181024
  Transmission Date: 20190205
  Serious: No
  Sender: FDA-Public Use
  Company Number: US-BIOGEN-2018BI00641667

PATIENT
  Sex: Male

DRUGS (1)
  1. TECFIDERA [Suspect]
     Active Substance: DIMETHYL FUMARATE
     Indication: MULTIPLE SCLEROSIS
     Dosage: MAINTENANCE DOSE?TAKE 1 CAPSULE BY?MOUTH TWICE A DAY
     Route: 048

REACTIONS (4)
  - Abdominal discomfort [Unknown]
  - Product dose omission [Recovered/Resolved]
  - Flushing [Unknown]
  - Abdominal distension [Unknown]
